FAERS Safety Report 18130936 (Version 1)
Quarter: 2020Q3

REPORT INFORMATION
  Report Type: Report from Study
  Country: US (occurrence: US)
  Receive Date: 20200810
  Receipt Date: 20200810
  Transmission Date: 20201103
  Serious: Yes (Hospitalization)
  Sender: FDA-Public Use
  Company Number: US-ACTELION-A-US2019-199257

PATIENT
  Age: 72 Year
  Sex: Male
  Weight: 72.56 kg

DRUGS (2)
  1. OPSUMIT [Suspect]
     Active Substance: MACITENTAN
     Indication: PULMONARY ARTERIAL HYPERTENSION
     Dosage: 10 MG, QD
     Route: 048
  2. ORENITRAM [Concomitant]
     Active Substance: TREPROSTINIL
     Dosage: UNK

REACTIONS (9)
  - Abdominal discomfort [Unknown]
  - Sinus headache [Unknown]
  - Dyspepsia [Unknown]
  - Abdominal pain upper [Unknown]
  - Discharge [Unknown]
  - Headache [Unknown]
  - Dyspnoea exertional [Not Recovered/Not Resolved]
  - Gastrooesophageal reflux disease [Unknown]
  - Influenza [Unknown]

NARRATIVE: CASE EVENT DATE: 20200325
